FAERS Safety Report 7686613-2 (Version None)
Quarter: 2011Q3

REPORT INFORMATION
  Report Type: 
  Country: None (occurrence: None)
  Receive Date: 20110816
  Receipt Date: 20110816
  Transmission Date: 20111222
  Serious: Yes (Other)
  Sender: FDA-Public Use
  Company Number: None

PATIENT
  Age: 48 Year
  Sex: Female
  Weight: 106.59 kg

DRUGS (1)
  1. CIPROFLOXACIN [Suspect]
     Indication: BACTERIAL INFECTION
     Dosage: TWICE
     Route: 048
     Dates: start: 20110809, end: 20110814

REACTIONS (8)
  - TOOTHACHE [None]
  - MALAISE [None]
  - IRRITABILITY [None]
  - RESTLESSNESS [None]
  - DYSGEUSIA [None]
  - DIZZINESS [None]
  - SWOLLEN TONGUE [None]
  - FEELING ABNORMAL [None]
